FAERS Safety Report 6373590-X (Version None)
Quarter: 2009Q3

REPORT INFORMATION
  Report Type: 
  Country: None (occurrence: None)
  Receive Date: 20090924
  Receipt Date: 20090918
  Transmission Date: 20100115
  Serious: Yes (Hospitalization)
  Sender: FDA-Public Use
  Company Number: US-JNJFOC-20090905813

PATIENT
  Sex: Female
  Weight: 71.67 kg

DRUGS (8)
  1. FENTANYL TRANSDERMAL SYSTEM [Suspect]
     Indication: BACK PAIN
     Route: 062
     Dates: start: 20090906
  2. FENTANYL TRANSDERMAL SYSTEM [Suspect]
     Route: 062
     Dates: start: 20060101, end: 20090906
  3. FENTANYL TRANSDERMAL SYSTEM [Suspect]
     Indication: BACK PAIN
     Route: 062
     Dates: start: 20060101, end: 20090906
  4. GABAPENTIN [Concomitant]
     Indication: MYALGIA
     Route: 048
     Dates: start: 20060101
  5. SYNTHROID [Concomitant]
     Indication: HYPOTHYROIDISM
     Route: 048
     Dates: start: 19790101
  6. AMITRIPTYLINE [Concomitant]
     Indication: MIGRAINE
     Dosage: AT NIGHT
     Route: 048
     Dates: start: 19990101
  7. PREMARIN [Concomitant]
     Indication: HOT FLUSH
     Route: 048
     Dates: start: 19890101
  8. CARISOPRODOL [Concomitant]
     Indication: BREAKTHROUGH PAIN
     Route: 048
     Dates: start: 20060101

REACTIONS (4)
  - ANXIETY [None]
  - INTESTINAL PROLAPSE [None]
  - UTERINE PROLAPSE [None]
  - WRONG TECHNIQUE IN DRUG USAGE PROCESS [None]
